FAERS Safety Report 23070404 (Version 2)
Quarter: 2023Q4

REPORT INFORMATION
  Report Type: Spontaneous
  Country: BE (occurrence: BE)
  Receive Date: 20231016
  Receipt Date: 20231106
  Transmission Date: 20240110
  Serious: Yes (Death, Life-Threatening, Hospitalization, Other)
  Sender: FDA-Public Use
  Company Number: BE-TAKEDA-2023TUS094068

PATIENT
  Age: 4 Year
  Sex: Male
  Weight: 18 kg

DRUGS (8)
  1. METHOTREXATE SODIUM [Suspect]
     Active Substance: METHOTREXATE SODIUM
     Indication: Immunosuppression
     Dosage: UNK
     Route: 042
  2. RUXOLITINIB [Suspect]
     Active Substance: RUXOLITINIB
     Dosage: UNK
     Route: 065
  3. ENTYVIO [Suspect]
     Active Substance: VEDOLIZUMAB
     Indication: Graft versus host disease
     Dosage: UNK
     Route: 065
     Dates: start: 20230928
  4. ENTYVIO [Suspect]
     Active Substance: VEDOLIZUMAB
     Indication: Immunosuppression
  5. CYCLOSPORINE [Suspect]
     Active Substance: CYCLOSPORINE
     Dosage: UNK
     Route: 065
  6. PREDNISONE [Suspect]
     Active Substance: PREDNISONE
     Dosage: 2 MILLIGRAM/KILOGRAM, QD
     Route: 065
  7. BASILIXIMAB [Suspect]
     Active Substance: BASILIXIMAB
     Dosage: UNK
     Route: 065
  8. ETANERCEPT [Concomitant]
     Active Substance: ETANERCEPT
     Dosage: UNK

REACTIONS (3)
  - Graft versus host disease in gastrointestinal tract [Fatal]
  - Critical illness [Unknown]
  - Drug ineffective [Unknown]

NARRATIVE: CASE EVENT DATE: 20231001
